FAERS Safety Report 8050689-3 (Version None)
Quarter: 2012Q1

REPORT INFORMATION
  Report Type: 
  Country: None (occurrence: None)
  Receive Date: 20120117
  Receipt Date: 20120117
  Transmission Date: 20120608
  Serious: Yes (Life-Threatening)
  Sender: FDA-Public Use
  Company Number: None

PATIENT
  Age: 60 Year
  Sex: Female
  Weight: 90.718 kg

DRUGS (2)
  1. JANUMET [Concomitant]
     Dosage: 1 PILL A DAY
     Route: 048
  2. JANUMET [Suspect]
     Indication: DIABETES MELLITUS
     Dosage: 1 PILL A DAY
     Route: 048

REACTIONS (6)
  - GAIT DISTURBANCE [None]
  - WHEEZING [None]
  - DIARRHOEA [None]
  - SOMNOLENCE [None]
  - OXYGEN SATURATION DECREASED [None]
  - FATIGUE [None]
